FAERS Safety Report 13914251 (Version 1)
Quarter: 2017Q3

REPORT INFORMATION
  Report Type: Spontaneous
  Country: US (occurrence: US)
  Receive Date: 20170828
  Receipt Date: 20170828
  Transmission Date: 20171127
  Serious: No
  Sender: FDA-Public Use
  Company Number: US-ROCHE-1139755

PATIENT
  Sex: Female
  Weight: 105 kg

DRUGS (4)
  1. HYDROCORTISONE. [Concomitant]
     Active Substance: HYDROCORTISONE
  2. NUTROPIN AQ [Suspect]
     Active Substance: SOMATROPIN
     Indication: HYPOPITUITARISM
     Route: 058
  3. FLORINEF ACETATE [Concomitant]
     Active Substance: FLUDROCORTISONE ACETATE
  4. SYNTHROID [Concomitant]
     Active Substance: LEVOTHYROXINE SODIUM

REACTIONS (13)
  - Disturbance in attention [Unknown]
  - Dysphonia [Unknown]
  - Asthenia [Unknown]
  - Sensory loss [Unknown]
  - Pollakiuria [Unknown]
  - Fatigue [Unknown]
  - Headache [Unknown]
  - Arthralgia [Unknown]
  - Weight increased [Unknown]
  - Increased tendency to bruise [Unknown]
  - Muscular weakness [Unknown]
  - Depressed mood [Unknown]
  - Nocturia [Unknown]
